FAERS Safety Report 25595817 (Version 1)
Quarter: 2025Q3

REPORT INFORMATION
  Report Type: Spontaneous
  Country: US (occurrence: None)
  Receive Date: 20250722
  Receipt Date: 20250722
  Transmission Date: 20251021
  Serious: Yes (Death, Hospitalization)
  Sender: FDA-CTU
  Company Number: None

PATIENT
  Age: 67 Year
  Sex: Female

DRUGS (2)
  1. TADALAFIL [Suspect]
     Active Substance: TADALAFIL
     Indication: Pulmonary arterial hypertension
     Dosage: 20MG QD ORAL
     Route: 048
     Dates: start: 20230614, end: 20250629
  2. AMBRISENTAN [Suspect]
     Active Substance: AMBRISENTAN

REACTIONS (3)
  - Acute hepatic failure [None]
  - Unresponsive to stimuli [None]
  - Cardiac arrest [None]

NARRATIVE: CASE EVENT DATE: 20250629
